FAERS Safety Report 6576968-4 (Version None)
Quarter: 2010Q1

REPORT INFORMATION
  Report Type: 
  Country: None (occurrence: None)
  Receive Date: 20100210
  Receipt Date: 20100128
  Transmission Date: 20100710
  Serious: Yes (Death)
  Sender: FDA-Public Use
  Company Number: JP-PFIZER INC-2010017278

PATIENT
  Age: 59 Year
  Sex: Male

DRUGS (5)
  1. ATARAX [Suspect]
     Dosage: 25 MG, DAILY
     Route: 042
     Dates: start: 20100121
  2. MORPHINE HCL ELIXIR [Suspect]
     Dosage: UNK
     Dates: start: 20100121
  3. SERENACE [Suspect]
     Dosage: 5 MG, DAILY
     Route: 030
     Dates: start: 20100121
  4. VOLTAREN [Suspect]
     Dosage: UNK
     Route: 054
     Dates: start: 20100121
  5. PENTAZOCINE [Suspect]
     Dosage: UNK
     Dates: start: 20100121

REACTIONS (1)
  - DEATH [None]
